FAERS Safety Report 7622360-0 (Version None)
Quarter: 2011Q3

REPORT INFORMATION
  Report Type: 
  Country: None (occurrence: None)
  Receive Date: 20110715
  Receipt Date: 20110715
  Transmission Date: 20111222
  Serious: Yes (Other)
  Sender: FDA-Public Use
  Company Number: None

PATIENT
  Sex: Female
  Weight: 65.7716 kg

DRUGS (3)
  1. TOP CARE 100MG TO 400MG STRENGTHS + FORMULATIONS [Suspect]
     Indication: CHRONIC SINUSITIS
     Dosage: 400MG AS DIRECTED ORAL (047) ABOUT 2-3 YEARS AGO
     Route: 048
  2. MUCINEX DM [Suspect]
     Indication: CHRONIC SINUSITIS
     Dosage: 600-1200MG AS DIRECTED ORAL (047)  ABOUT 3 YRS AGO
     Route: 048
  3. MUCINEX DM [Suspect]
     Indication: RHINITIS ALLERGIC
     Dosage: 600-1200MG AS DIRECTED ORAL (047)  ABOUT 3 YRS AGO
     Route: 048

REACTIONS (3)
  - CONDITION AGGRAVATED [None]
  - PRODUCT SUBSTITUTION ISSUE [None]
  - COLITIS [None]
